FAERS Safety Report 4382066-0 (Version None)
Quarter: 2004Q2

REPORT INFORMATION
  Report Type: 
  Country: None (occurrence: None)
  Receive Date: 20040603
  Receipt Date: 20030414
  Transmission Date: 20050107
  Serious: Yes (Other)
  Sender: FDA-Public Use
  Company Number: 200313491US

PATIENT

DRUGS (1)
  1. HEPARIN-FRACTION, SODIUM SALT (LEVENOX) [Suspect]
     Indication: DEEP VEIN THROMBOSIS
     Dosage: Q12H SC
     Route: 058

REACTIONS (2)
  - PULMONARY EMBOLISM [None]
  - THROMBOSIS [None]
